FAERS Safety Report 9467334 (Version 1)
Quarter: 2013Q3

REPORT INFORMATION
  Report Type: Spontaneous
  Country: US (occurrence: US)
  Receive Date: 20130821
  Receipt Date: 20130821
  Transmission Date: 20140515
  Serious: No
  Sender: FDA-Public Use
  Company Number: US-009507513-1308USA000117

PATIENT
  Age: 71 Year
  Sex: Female

DRUGS (3)
  1. DULERA [Suspect]
     Indication: CHRONIC OBSTRUCTIVE PULMONARY DISEASE
     Dosage: 2 DF, BID
     Route: 055
  2. PROAIR (FLUTICASONE PROPIONATE) [Concomitant]
  3. COUMADIN [Concomitant]

REACTIONS (5)
  - Dysphonia [Not Recovered/Not Resolved]
  - Drug dose omission [Unknown]
  - Device malfunction [Unknown]
  - Product quality issue [Unknown]
  - Off label use [Unknown]
